APPROVED DRUG PRODUCT: SUMATRIPTAN
Active Ingredient: SUMATRIPTAN
Strength: 5MG/SPRAY
Dosage Form/Route: SPRAY;NASAL
Application: A213465 | Product #002 | TE Code: AB
Applicant: PADAGIS ISRAEL PHARMACEUTICALS LTD
Approved: Sep 21, 2020 | RLD: No | RS: No | Type: RX